FAERS Safety Report 19444555 (Version 1)
Quarter: 2021Q2

REPORT INFORMATION
  Report Type: Spontaneous
  Country: US (occurrence: US)
  Receive Date: 20210621
  Receipt Date: 20210621
  Transmission Date: 20210717
  Serious: Yes (Death, Other)
  Sender: FDA-Public Use
  Company Number: US-SA-2021SA202485

PATIENT
  Age: 70 Year
  Sex: Female

DRUGS (2)
  1. ZANTAC [Suspect]
     Active Substance: RANITIDINE HYDROCHLORIDE
     Indication: GASTROOESOPHAGEAL REFLUX DISEASE
     Dosage: QD
     Dates: start: 200901, end: 201601
  2. ZANTAC [Suspect]
     Active Substance: RANITIDINE HYDROCHLORIDE
     Indication: DYSPEPSIA

REACTIONS (9)
  - Gastrointestinal carcinoma [Fatal]
  - Hepatic cancer [Fatal]
  - Gastric cancer [Fatal]
  - Bladder cancer [Fatal]
  - Gallbladder cancer stage II [Fatal]
  - Skin cancer [Fatal]
  - Colorectal cancer [Fatal]
  - Pancreatic carcinoma [Fatal]
  - Bile duct cancer stage II [Fatal]

NARRATIVE: CASE EVENT DATE: 20181101
